FAERS Safety Report 9122136 (Version 1)
Quarter: 2013Q1

REPORT INFORMATION
  Report Type: Spontaneous
  Country: CA (occurrence: CA)
  Receive Date: 20130114
  Receipt Date: 20130114
  Transmission Date: 20140127
  Serious: Yes (Hospitalization)
  Sender: FDA-Public Use
  Company Number: PHHY2011CA06650

PATIENT
  Sex: Female

DRUGS (3)
  1. ACLASTA [Suspect]
     Indication: OSTEOPOROSIS
     Dosage: UNK
     Route: 042
     Dates: start: 20100322
  2. ACLASTA [Suspect]
     Dosage: UNK
     Route: 042
     Dates: start: 20110318
  3. ACLASTA [Suspect]
     Dosage: UNK
     Route: 042
     Dates: start: 20120313

REACTIONS (3)
  - Fracture [Unknown]
  - Gait disturbance [Unknown]
  - Malaise [Unknown]
